FAERS Safety Report 8430708-2 (Version None)
Quarter: 2012Q2

REPORT INFORMATION
  Report Type: 
  Country: None (occurrence: None)
  Receive Date: 20120323
  Receipt Date: 20110606
  Transmission Date: 20120825
  Serious: Yes (Hospitalization, Other)
  Sender: FDA-Public Use
  Company Number: 163-21880-11061108

PATIENT
  Age: 81 Year
  Sex: Male
  Weight: 98.9 kg

DRUGS (2)
  1. BLOOD PRESSURE MEDICATION (ANTIHYPERTENSIVES) [Concomitant]
  2. REVLIMID [Suspect]
     Indication: MULTIPLE MYELOMA
     Dosage: 15 MG, 1 IN 1 D, PO
     Route: 048
     Dates: start: 20090420

REACTIONS (2)
  - SYNCOPE [None]
  - HAEMOGLOBIN DECREASED [None]
